FAERS Safety Report 9116353 (Version 2)
Quarter: 2013Q1

REPORT INFORMATION
  Report Type: Spontaneous
  Country: AU (occurrence: AU)
  Receive Date: 20130225
  Receipt Date: 20130327
  Transmission Date: 20140127
  Serious: Yes (Death, Life-Threatening, Hospitalization, Disabling, Other)
  Sender: FDA-Public Use
  Company Number: AU-B.I. PHARMACEUTICALS,INC./RIDGEFIELD-2013-AU-00180AU

PATIENT
  Age: 84 None
  Sex: Male

DRUGS (2)
  1. PRADAXA [Suspect]
     Indication: CEREBROVASCULAR ACCIDENT PROPHYLAXIS
     Dates: start: 20110923, end: 20130214
  2. PRADAXA [Suspect]
     Indication: ATRIAL FIBRILLATION

REACTIONS (25)
  - Death [Fatal]
  - Central-alveolar hypoventilation [Unknown]
  - Vascular dementia [Unknown]
  - Sepsis [Unknown]
  - Cardiac failure [Unknown]
  - Tibia fracture [Unknown]
  - Fibula fracture [Unknown]
  - Joint dislocation [Unknown]
  - Ankle fracture [Unknown]
  - Joint dislocation [Unknown]
  - Pneumonia [Unknown]
  - Pneumonia [Recovered/Resolved]
  - Wound infection [Unknown]
  - Urinary tract infection [Unknown]
  - Fall [Unknown]
  - Atrial fibrillation [Unknown]
  - Hypoxia [Unknown]
  - Prostatomegaly [Unknown]
  - Urinary retention [Unknown]
  - Ulcer [Unknown]
  - Sleep apnoea syndrome [Unknown]
  - Respiratory rate increased [Unknown]
  - Coma scale abnormal [Unknown]
  - Amnesia [Unknown]
  - Impulsive behaviour [Unknown]
